FAERS Safety Report 7495624-1 (Version None)
Quarter: 2011Q2

REPORT INFORMATION
  Report Type: 
  Country: None (occurrence: None)
  Receive Date: 20110523
  Receipt Date: 20110516
  Transmission Date: 20111010
  Serious: Yes (Other)
  Sender: FDA-Public Use
  Company Number: US-ASTRAZENECA-2010SE34958

PATIENT
  Sex: Male

DRUGS (4)
  1. SEROQUEL [Suspect]
     Route: 048
     Dates: start: 20070101, end: 20080701
  2. DEPAKOTE [Concomitant]
     Route: 048
     Dates: start: 20071214
  3. CELEXA [Concomitant]
     Dates: start: 20071214
  4. SEROQUEL [Suspect]
     Dosage: 50 TO 300 MG
     Route: 048
     Dates: start: 20071214

REACTIONS (6)
  - DIABETES MELLITUS [None]
  - PAIN [None]
  - WEIGHT INCREASED [None]
  - NERVE INJURY [None]
  - SHOCK [None]
  - ANXIETY [None]
